FAERS Safety Report 8428547-1 (Version None)
Quarter: 2012Q2

REPORT INFORMATION
  Report Type: 
  Country: None (occurrence: None)
  Receive Date: 20120606
  Receipt Date: 20120606
  Transmission Date: 20120825
  Serious: Yes (Other)
  Sender: FDA-Public Use
  Company Number: None

PATIENT
  Age: 33 Year
  Sex: Male
  Weight: 81.6475 kg

DRUGS (1)
  1. OPANA ER [Suspect]
     Indication: PAIN
     Dosage: TAKE 2 TABLETS EVERY 8 HOURS PO
     Route: 048
     Dates: start: 20120517, end: 20120517

REACTIONS (3)
  - PRODUCT QUALITY ISSUE [None]
  - NAUSEA [None]
  - URTICARIA [None]
